FAERS Safety Report 9543414 (Version 2)
Quarter: 2013Q4

REPORT INFORMATION
  Report Type: Report from Study
  Country: CO (occurrence: CO)
  Receive Date: 20130923
  Receipt Date: 20131001
  Transmission Date: 20140711
  Serious: Yes (Hospitalization)
  Sender: FDA-Public Use
  Company Number: CO-ROCHE-1279529

PATIENT
  Age: 56 Year
  Sex: Female

DRUGS (5)
  1. XOLAIR [Suspect]
     Indication: ASTHMA
     Route: 058
  2. AMOXICILLIN [Concomitant]
  3. LUCENTIS [Concomitant]
     Route: 065
     Dates: start: 2011
  4. MONTELUKAST [Concomitant]
  5. THEOPHYLLINE [Concomitant]

REACTIONS (3)
  - Asthmatic crisis [Recovered/Resolved]
  - Bronchitis [Recovered/Resolved]
  - Sinusitis [Recovered/Resolved]
